FAERS Safety Report 17308391 (Version 1)
Quarter: 2020Q1

REPORT INFORMATION
  Report Type: Spontaneous
  Country: FR (occurrence: FR)
  Receive Date: 20200123
  Receipt Date: 20200123
  Transmission Date: 20200409
  Serious: Yes (Other)
  Sender: FDA-Public Use
  Company Number: FR-TEVA-2018-FR-886197

PATIENT
  Age: 69 Year
  Sex: Male
  Weight: 109 kg

DRUGS (3)
  1. OXAZEPAM. [Suspect]
     Active Substance: OXAZEPAM
     Dosage: 50 MILLIGRAM DAILY;
     Route: 048
  2. ZOLPIDEM [Suspect]
     Active Substance: ZOLPIDEM TARTRATE
     Dosage: 10 MILLIGRAM DAILY;
     Route: 048
  3. LORMETAZEPAM [Suspect]
     Active Substance: LORMETAZEPAM
     Dosage: 2 MILLIGRAM DAILY;
     Route: 048

REACTIONS (2)
  - Respiratory distress [Not Recovered/Not Resolved]
  - Drug dependence [Not Recovered/Not Resolved]
